FAERS Safety Report 15850810 (Version 1)
Quarter: 2019Q1

REPORT INFORMATION
  Report Type: Report from Study
  Country: US (occurrence: US)
  Receive Date: 20190121
  Receipt Date: 20190121
  Transmission Date: 20190417
  Serious: Yes (Other)
  Sender: FDA-Public Use
  Company Number: US-AMGEN INC.-USASL2018176058

PATIENT
  Age: 62 Year
  Sex: Female
  Weight: 83.9 kg

DRUGS (1)
  1. AIMOVIG [Suspect]
     Active Substance: ERENUMAB-AOOE
     Indication: MIGRAINE WITHOUT AURA
     Dosage: 70 MG, UNK
     Route: 058
     Dates: start: 20181122, end: 20181122

REACTIONS (5)
  - Anxiety [Unknown]
  - Ear disorder [Not Recovered/Not Resolved]
  - Constipation [Unknown]
  - Chest pain [Recovered/Resolved]
  - Dyspnoea [Not Recovered/Not Resolved]

NARRATIVE: CASE EVENT DATE: 20181122
